FAERS Safety Report 18544903 (Version 1)
Quarter: 2020Q4

REPORT INFORMATION
  Report Type: Spontaneous
  Country: FR (occurrence: FR)
  Receive Date: 20201125
  Receipt Date: 20201125
  Transmission Date: 20210114
  Serious: Yes (Hospitalization)
  Sender: FDA-Public Use
  Company Number: FR-TEVA-2020-FR-1851186

PATIENT
  Age: 62 Year
  Sex: Male
  Weight: 63 kg

DRUGS (12)
  1. FORLAX 10 G, POUDRE POUR SOLUTION BUVABLE EN SACHET-DOSE [Concomitant]
     Active Substance: POLYETHYLENE GLYCOL 4000
  2. HALDOL [Suspect]
     Active Substance: HALOPERIDOL
     Indication: PRODUCT USED FOR UNKNOWN INDICATION
     Route: 048
  3. TARDYFERON [Concomitant]
     Active Substance: FERROUS SULFATE
  4. AUGMENTIN [Concomitant]
     Active Substance: AMOXICILLIN\CLAVULANATE POTASSIUM
  5. PAROXETINE (CHLORHYDRATE DE) HEMIHYDRATE [Suspect]
     Active Substance: PAROXETINE HYDROCHLORIDE
     Indication: DEPRESSION
     Route: 048
  6. BACLOFENE [Concomitant]
     Active Substance: BACLOFEN
  7. LOVENOX [Concomitant]
     Active Substance: ENOXAPARIN SODIUM
  8. DUODOPA [Concomitant]
     Active Substance: CARBIDOPA\LEVODOPA
  9. LORMETAZEPAM ARROW 2 MG, COMPRIME SECABLE [Interacting]
     Active Substance: LORMETAZEPAM
     Indication: PRODUCT USED FOR UNKNOWN INDICATION
     Route: 048
     Dates: end: 20201015
  10. CLOZAPINE. [Suspect]
     Active Substance: CLOZAPINE
     Indication: PRODUCT USED FOR UNKNOWN INDICATION
     Route: 048
  11. DIAZEPAM ARROW 10 MG, COMPRIME SECABLE [Suspect]
     Active Substance: DIAZEPAM
     Indication: ANXIETY
     Dosage: 0.5CP - 1CP - 1CP / DAY
     Route: 048
     Dates: end: 20201015
  12. ACIDE FOLIQUE [Concomitant]
     Active Substance: FOLIC ACID

REACTIONS (2)
  - Pneumonia aspiration [Recovered/Resolved]
  - Somnolence [Recovered/Resolved]

NARRATIVE: CASE EVENT DATE: 20201015
